FAERS Safety Report 8978399 (Version 1)
Quarter: 2012Q4

REPORT INFORMATION
  Report Type: 
  Country: JP (occurrence: JP)
  Receive Date: 20121221
  Receipt Date: 20121221
  Transmission Date: 20130627
  Serious: Yes (Other)
  Sender: FDA-Public Use
  Company Number: JP-PFIZER INC-2012310190

PATIENT
  Age: 24 Year
  Sex: Male

DRUGS (3)
  1. SOLANAX [Suspect]
     Dosage: 1.6 mg, 1x/day
     Route: 048
     Dates: start: 201204
  2. LAMICTAL [Suspect]
     Dosage: UNK
     Route: 048
     Dates: start: 201207, end: 20120821
  3. CYMBALTA [Suspect]
     Dosage: 60 mg/day
     Route: 048
     Dates: start: 201204

REACTIONS (1)
  - Corneal erosion [Recovered/Resolved]
